FAERS Safety Report 9289463 (Version 3)
Quarter: 2014Q2

REPORT INFORMATION
  Report Type: Spontaneous
  Country: US (occurrence: US)
  Receive Date: 20130514
  Receipt Date: 20140605
  Transmission Date: 20141212
  Serious: No
  Sender: FDA-Public Use
  Company Number: US-009507513-1302USA008769

PATIENT
  Age: 39 Year
  Sex: Male

DRUGS (4)
  1. ZOCOR [Suspect]
     Indication: HYPERLIPIDAEMIA
     Dosage: 40 MG, QD
     Route: 048
     Dates: start: 20120615
  2. LISINOPRIL [Concomitant]
     Indication: ESSENTIAL HYPERTENSION
     Dosage: 1 TABLET/ORAL QD X 180 DAYS
     Route: 048
  3. NORVASC [Concomitant]
     Indication: ESSENTIAL HYPERTENSION
     Dosage: 1 TAB / ORAL / EACH EVENING X 180 DAYS
     Route: 048
  4. ASPIRIN [Concomitant]
     Indication: ESSENTIAL HYPERTENSION
     Dosage: 1 TAB / ORAL / QD  X 180 DAYS
     Route: 048

REACTIONS (2)
  - Therapeutic response changed [Unknown]
  - Dizziness [Unknown]
